FAERS Safety Report 20511224 (Version 1)
Quarter: 2022Q1

REPORT INFORMATION
  Report Type: Report from Study
  Country: US (occurrence: US)
  Receive Date: 20220224
  Receipt Date: 20220224
  Transmission Date: 20220423
  Serious: Yes (Hospitalization)
  Sender: FDA-Public Use
  Company Number: US-BAXTER-2022BAX003328

PATIENT
  Age: 21 Year
  Sex: Male
  Weight: 44 kg

DRUGS (34)
  1. CYCLOPHOSPHAMIDE [Suspect]
     Active Substance: CYCLOPHOSPHAMIDE
     Indication: Acute lymphocytic leukaemia
     Dosage: 1530 MG AS DIRECTED
     Route: 042
     Dates: start: 20210702
  2. CYCLOPHOSPHAMIDE [Suspect]
     Active Substance: CYCLOPHOSPHAMIDE
     Dosage: LAST DOSE ADMINISTERED PRIOR TO NAUSEA (2ND OCCURRENCE), VOMITING, AND FEBRILE NEUTROPENIA
     Route: 042
     Dates: start: 20211223, end: 20211223
  3. CYCLOPHOSPHAMIDE [Suspect]
     Active Substance: CYCLOPHOSPHAMIDE
     Dosage: LAST DOSE ADMINISTERED PRIOR TO PANCREATITIS, NAUSEA (1ST OCCURRENCE), AND FEEDING INTOLERANCE
     Route: 042
  4. DOXIL [Suspect]
     Active Substance: DOXORUBICIN HYDROCHLORIDE
     Indication: Acute lymphocytic leukaemia
     Route: 042
     Dates: start: 20211119
  5. DOXIL [Suspect]
     Active Substance: DOXORUBICIN HYDROCHLORIDE
     Dosage: LAST DOSE PRIOR TO PANCREATITIS, NAUSEA, FEEDING INTOLERANCE, VOMITING, AND FEBRILE NEUTROPENIA
     Route: 042
     Dates: start: 20211203, end: 20211203
  6. RUXOLITINIB [Suspect]
     Active Substance: RUXOLITINIB
     Indication: Acute lymphocytic leukaemia
     Dosage: TABLET, BID EVERY 14 DAYS
     Route: 048
     Dates: start: 20210702
  7. RUXOLITINIB [Suspect]
     Active Substance: RUXOLITINIB
     Dosage: TABLET, LAST DOSE PRIOR TO PANCREATITIS, NAUSEA (1ST OCCURRENCE), AND FEEDING INTOLERANCE
     Route: 048
     Dates: start: 20211202, end: 20211202
  8. RUXOLITINIB [Suspect]
     Active Substance: RUXOLITINIB
     Dosage: TABLET, LAST DOSE PRIOR TO NAUSEA (2ND OCCURRENCE), VOMITING, AND FEBRILE NEUTROPENIA
     Route: 048
     Dates: start: 20220105, end: 20220105
  9. DEXAMETHASONE [Suspect]
     Active Substance: DEXAMETHASONE
     Indication: Acute lymphocytic leukaemia
     Dosage: TABLET, BID FOR 7 DAYS
     Route: 048
     Dates: start: 20211119
  10. DEXAMETHASONE [Suspect]
     Active Substance: DEXAMETHASONE
     Dosage: TABLET, LAST DOSE ADMINISTERED PRIOR TO PANCREATITIS
     Route: 048
  11. DEXAMETHASONE [Suspect]
     Active Substance: DEXAMETHASONE
     Dosage: TABLET, LAST DOSE PRIOR TO NAUSEA (1ST AND 2ND), FEEDING INTOLERANCE, VOMITING, FEBRILE NEUTROPENIA
     Route: 048
     Dates: start: 20211209, end: 20211209
  12. PEGASPARGASE [Suspect]
     Active Substance: PEGASPARGASE
     Indication: Acute lymphocytic leukaemia
     Dosage: 3825 IU AS DIRECTED
     Route: 042
     Dates: start: 20210716
  13. PEGASPARGASE [Suspect]
     Active Substance: PEGASPARGASE
     Dosage: LAST DOSE ADMINISTERED PRIOR TO NAUSEA (2ND OCCURRENCE), VOMITING, AND FEBRILE NEUTROPENIA
     Route: 042
     Dates: start: 20220107, end: 20220107
  14. PEGASPARGASE [Suspect]
     Active Substance: PEGASPARGASE
     Dosage: LAST DOSE ADMINISTERED PRIOR TO PANCREATITIS, NAUSEA (1ST OCCURRENCE), AND FEEDING INTOLERANCE
     Route: 042
  15. VINCRISTINE [Suspect]
     Active Substance: VINCRISTINE
     Indication: Acute lymphocytic leukaemia
     Dosage: 2 MILLIGRAM, ONE TIME AS DIRECTED
     Route: 042
     Dates: start: 20210716
  16. VINCRISTINE [Suspect]
     Active Substance: VINCRISTINE
     Dosage: LAST DOSE PRIOR TO PANCREATITIS, NAUSEA (1ST OCCURRENCE), AND FEEDING INTOLERANCE
     Route: 042
     Dates: start: 20211203, end: 20211203
  17. VINCRISTINE [Suspect]
     Active Substance: VINCRISTINE
     Dosage: LAST DOSE PRIOR TO NAUSEA (2ND OCCURRENCE), VOMITING, AND FEBRILE NEUTROPENIA
     Route: 042
     Dates: start: 20220107, end: 20220107
  18. VINCRISTINE [Suspect]
     Active Substance: VINCRISTINE
     Dosage: LAST DOSE PRIOR TO FEBRILE NEUTROPENIA
     Route: 042
     Dates: start: 20220114, end: 20220114
  19. LEUCOVORIN [Suspect]
     Active Substance: LEUCOVORIN
     Indication: Acute lymphocytic leukaemia
     Dosage: UNK
     Route: 042
  20. LEUCOVORIN [Suspect]
     Active Substance: LEUCOVORIN
     Dosage: LAST DOSE PRIOR TO PANCREATITIS, NAUSEA, FEEDING INTOLERANCE, VOMITING, FEBRILE NEUTROPENIA
     Route: 042
  21. METHOTREXATE [Suspect]
     Active Substance: METHOTREXATE
     Indication: Acute lymphocytic leukaemia
     Dosage: 15 MILLIGRAM AS DIRECTED
     Route: 037
     Dates: start: 20210702
  22. METHOTREXATE [Suspect]
     Active Substance: METHOTREXATE
     Dosage: 7500 MILLIGRAM AS DIRECTED
     Route: 042
     Dates: start: 20210910
  23. METHOTREXATE [Suspect]
     Active Substance: METHOTREXATE
     Dosage: LAST DOSE ADMINISTERED PRIOR TO FEBRILE NEUTROPENIA
     Route: 042
     Dates: start: 20211030, end: 20211030
  24. METHOTREXATE [Suspect]
     Active Substance: METHOTREXATE
     Dosage: LAST DOSE ADMINISTERED PRIOR TO PANCREATITIS, NAUSEA (1ST OCCURRENCE), AND FEEDING INTOLERANCE
     Route: 037
     Dates: start: 20211119, end: 20211119
  25. METHOTREXATE [Suspect]
     Active Substance: METHOTREXATE
     Dosage: LAST DOSE ADMINISTERED PRIOR TO NAUSEA (2ND OCCURRENCE), VOMITING, AND FEBRILE NEUTROPENIA
     Route: 037
     Dates: start: 20211230, end: 20211230
  26. METHOTREXATE [Suspect]
     Active Substance: METHOTREXATE
     Dosage: LAST DOSE PRIOR TO PANCREATITIS, NAUSEA (1ST, 2ND OCCURRENCE), FEEDING INTOLERANCE, AND VOMITING
     Route: 042
  27. MERCAPTOPURINE [Suspect]
     Active Substance: MERCAPTOPURINE
     Indication: Acute lymphocytic leukaemia
     Dosage: TABLET, 60 MG/M2 AS DIRECTED
     Route: 048
     Dates: start: 20210702
  28. MERCAPTOPURINE [Suspect]
     Active Substance: MERCAPTOPURINE
     Dosage: TABLET, LAST DOSE ADMINISTERED PRIOR TO FEBRILE NEUTROPENIA
     Route: 048
     Dates: start: 20211111, end: 20211111
  29. MERCAPTOPURINE [Suspect]
     Active Substance: MERCAPTOPURINE
     Dosage: TABLET, LAST DOSE ADMINISTERED PRIOR TO PANCREATITIS, NAUSEA, FEEDING INTOLERANCE, VOMITING
     Route: 048
  30. CYTARABINE [Suspect]
     Active Substance: CYTARABINE
     Indication: Acute lymphocytic leukaemia
     Dosage: 115 MILLIGRAM AS DIRECTED
     Route: 058
     Dates: start: 20210702
  31. CYTARABINE [Suspect]
     Active Substance: CYTARABINE
     Dosage: LAST DOSE ADMINISTERED PRIOR TO NAUSEA (2ND OCCURRENCE), VOMITING, AND FEBRILE NEUTROPENIA
     Route: 058
     Dates: start: 20220102, end: 20220102
  32. CYTARABINE [Suspect]
     Active Substance: CYTARABINE
     Dosage: LAST DOSE ADMINISTERED PRIOR TO PANCREATITIS, NAUSEA (1ST OCCURRENCE), AND FEEDING INTOLERANCE
     Route: 058
  33. THIOGUANINE [Suspect]
     Active Substance: THIOGUANINE
     Indication: Acute lymphocytic leukaemia
     Dosage: TABLET
     Route: 048
     Dates: start: 20210716
  34. THIOGUANINE [Suspect]
     Active Substance: THIOGUANINE
     Dosage: TABLET, LAST DOSE PRIOR TO NAUSEA (2ND OCCURRENCE), VOMITING, AND FEBRILE NEUTROPENIA
     Route: 048
     Dates: start: 20220105, end: 20220105

REACTIONS (6)
  - Feeding intolerance [Recovering/Resolving]
  - Pancreatitis [Recovered/Resolved]
  - Febrile neutropenia [Recovered/Resolved]
  - Vomiting [Recovered/Resolved]
  - Nausea [Recovered/Resolved]
  - Nausea [Not Recovered/Not Resolved]

NARRATIVE: CASE EVENT DATE: 20211208
